FAERS Safety Report 5272482-7 (Version None)
Quarter: 2007Q1

REPORT INFORMATION
  Report Type: 
  Country: None (occurrence: None)
  Receive Date: 20070322
  Receipt Date: 20051230
  Transmission Date: 20070707
  Serious: No
  Sender: FDA-Public Use
  Company Number: US-BRISTOL-MYERS SQUIBB COMPANY-13233580

PATIENT
  Sex: Female
  Weight: 59 kg

DRUGS (1)
  1. KENALOG [Suspect]
     Route: 030
     Dates: start: 20030101

REACTIONS (2)
  - INJECTION SITE PAIN [None]
  - MUSCLE ATROPHY [None]
